FAERS Safety Report 6610814-5 (Version None)
Quarter: 2010Q1

REPORT INFORMATION
  Report Type: 
  Country: None (occurrence: None)
  Receive Date: 20100302
  Receipt Date: 20100223
  Transmission Date: 20100710
  Serious: Yes (Hospitalization)
  Sender: FDA-Public Use
  Company Number: US-BAXTER-2010BH003203

PATIENT
  Age: 2 Year
  Sex: Female

DRUGS (2)
  1. DIANEAL [Suspect]
     Indication: PERITONEAL DIALYSIS
     Route: 033
     Dates: start: 20090101, end: 20100130
  2. DIANEAL [Suspect]
     Route: 033
     Dates: start: 20100213

REACTIONS (2)
  - INFUSION SITE EXTRAVASATION [None]
  - UMBILICAL HERNIA [None]
